FAERS Safety Report 9341057 (Version 2)
Quarter: 2013Q2

REPORT INFORMATION
  Report Type: Spontaneous
  Country: US (occurrence: US)
  Receive Date: 20130610
  Receipt Date: 20130626
  Transmission Date: 20140414
  Serious: Yes (Other)
  Sender: FDA-Public Use
  Company Number: US-ASTRAZENECA-2013SE37805

PATIENT
  Age: 24443 Day
  Sex: Female
  Weight: 117.9 kg

DRUGS (11)
  1. LISINOPRIL [Suspect]
     Indication: PROPHYLAXIS
     Route: 048
     Dates: start: 2010
  2. LISINOPRIL [Suspect]
     Indication: RENAL DISORDER
     Route: 048
     Dates: start: 2010
  3. CRESTOR [Suspect]
     Indication: BLOOD CHOLESTEROL ABNORMAL
     Route: 048
     Dates: start: 20130521, end: 20130525
  4. CRESTOR [Suspect]
     Indication: HYPERLIPIDAEMIA
     Route: 048
     Dates: start: 20130521, end: 20130525
  5. ONGLYZA [Suspect]
     Indication: DIABETES MELLITUS
     Route: 048
     Dates: start: 2011
  6. HYDROCHLOROTHIAZIDE [Suspect]
     Indication: DIURETIC THERAPY
     Route: 048
     Dates: start: 2006
  7. WELCHOL [Concomitant]
     Indication: BLOOD CHOLESTEROL ABNORMAL
     Route: 048
     Dates: start: 2011
  8. JANUVIA [Concomitant]
     Indication: DIABETES MELLITUS
     Route: 048
  9. LETROZOLE [Concomitant]
     Indication: NEOPLASM MALIGNANT
     Route: 048
     Dates: start: 2006
  10. PANTOPROZOLE [Concomitant]
     Indication: GASTRIC DISORDER
     Route: 048
     Dates: start: 2010
  11. PROLIA [Concomitant]
     Indication: OSTEOPOROSIS
     Dosage: 60ML 6 MONTHLY
     Route: 050

REACTIONS (5)
  - Hyperlipidaemia [Recovering/Resolving]
  - Musculoskeletal pain [Recovered/Resolved]
  - Myalgia [Recovered/Resolved]
  - Arthralgia [Recovered/Resolved]
  - Pain in extremity [Recovered/Resolved]
